FAERS Safety Report 16525147 (Version 2)
Quarter: 2019Q3

REPORT INFORMATION
  Report Type: Spontaneous
  Country: US (occurrence: US)
  Receive Date: 20190703
  Receipt Date: 20190708
  Transmission Date: 20191004
  Serious: No
  Sender: FDA-Public Use
  Company Number: US-GALDERMA-US19027187

PATIENT
  Age: 68 Year
  Sex: Female

DRUGS (2)
  1. LATISSE [Concomitant]
     Active Substance: BIMATOPROST
     Indication: EYE DISORDER
     Route: 047
     Dates: start: 2017
  2. ORACEA [Suspect]
     Active Substance: DOXYCYCLINE
     Indication: OCULAR ROSACEA
     Route: 048
     Dates: start: 2011

REACTIONS (3)
  - Glossodynia [Recovered/Resolved]
  - Candida infection [Recovered/Resolved]
  - Tongue erythema [Recovered/Resolved]

NARRATIVE: CASE EVENT DATE: 201811
